FAERS Safety Report 8271010-1 (Version None)
Quarter: 2012Q2

REPORT INFORMATION
  Report Type: 
  Country: None (occurrence: None)
  Receive Date: 20120410
  Receipt Date: 20120326
  Transmission Date: 20120825
  Serious: Yes (Death, Other)
  Sender: FDA-Public Use
  Company Number: HU-ROCHE-1052459

PATIENT
  Sex: Male

DRUGS (7)
  1. AVASTIN [Suspect]
     Indication: RECTAL CANCER METASTATIC
     Route: 042
     Dates: start: 20120118, end: 20120130
  2. IRINOTECAN HCL [Suspect]
     Indication: RECTAL CANCER METASTATIC
     Route: 042
     Dates: start: 20120118, end: 20120130
  3. VALSACOR [Concomitant]
     Indication: HYPERTENSION
  4. PENTOXYL-EP [Concomitant]
     Indication: PERIPHERAL VASCULAR DISORDER
  5. XELODA [Suspect]
     Indication: RECTAL CANCER METASTATIC
     Route: 042
     Dates: start: 20120118, end: 20120130
  6. CONTROLOC (HUNGARY) [Concomitant]
     Indication: GASTROOESOPHAGEAL REFLUX DISEASE
  7. SYNCUMAR [Concomitant]

REACTIONS (5)
  - THROMBOSIS [None]
  - ANAEMIA [None]
  - CARDIAC FAILURE [None]
  - DIARRHOEA [None]
  - NEUTROPENIA [None]
